FAERS Safety Report 21836032 (Version 1)
Quarter: 2023Q1

REPORT INFORMATION
  Report Type: Report from Study
  Country: GB (occurrence: GB)
  Receive Date: 20230109
  Receipt Date: 20230109
  Transmission Date: 20230418
  Serious: Yes (Other)
  Sender: FDA-Public Use
  Company Number: GB-002147023-NVSC2022GB290454

PATIENT
  Sex: Female

DRUGS (1)
  1. HYRIMOZ [Suspect]
     Active Substance: ADALIMUMAB-ADAZ
     Indication: Ankylosing spondylitis
     Dosage: 40 MG, QOD (2 PREFILLED DISPOSABLE INJECTION)
     Route: 058

REACTIONS (5)
  - Ankylosing spondylitis [Unknown]
  - Discomfort [Unknown]
  - Back pain [Unknown]
  - Musculoskeletal chest pain [Unknown]
  - Product prescribing issue [Unknown]
